FAERS Safety Report 5292525-4 (Version None)
Quarter: 2007Q1

REPORT INFORMATION
  Report Type: 
  Country: None (occurrence: None)
  Receive Date: 20070326
  Receipt Date: 20070312
  Transmission Date: 20070707
  Serious: Yes (Other)
  Sender: FDA-Public Use
  Company Number: WSDF_00626

PATIENT
  Age: 62 Year
  Sex: Female
  Weight: 63.5036 kg

DRUGS (1)
  1. WINRHO [Suspect]
     Indication: IDIOPATHIC THROMBOCYTOPENIC PURPURA
     Dosage: 2600 MCG ONCE IV
     Route: 042
     Dates: start: 20070213, end: 20070213

REACTIONS (3)
  - ANAPHYLACTIC REACTION [None]
  - FACIAL PAIN [None]
  - PAIN IN JAW [None]
